FAERS Safety Report 14078457 (Version 1)
Quarter: 2017Q4

REPORT INFORMATION
  Report Type: Spontaneous
  Country: US (occurrence: US)
  Receive Date: 20171012
  Receipt Date: 20171012
  Transmission Date: 20180321
  Serious: No
  Sender: FDA-Public Use
  Company Number: US-PFIZER INC-2017439842

PATIENT
  Age: 57 Year
  Sex: Female
  Weight: 65.76 kg

DRUGS (1)
  1. IBRANCE [Suspect]
     Active Substance: PALBOCICLIB
     Indication: BREAST CANCER
     Dosage: 125 MG, DAILY (1 CAPSULE DAILY FOR 21/DAYS)
     Route: 048
     Dates: start: 20170923

REACTIONS (2)
  - Skin fissures [Unknown]
  - Dry skin [Unknown]
